FAERS Safety Report 17019785 (Version 1)
Quarter: 2019Q4

REPORT INFORMATION
  Report Type: Spontaneous
  Country: US (occurrence: US)
  Receive Date: 20191112
  Receipt Date: 20191112
  Transmission Date: 20200122
  Serious: No
  Sender: FDA-Public Use
  Company Number: US-BTG-201900065

PATIENT
  Age: 53 Year
  Sex: Male

DRUGS (3)
  1. CROFAB [Suspect]
     Active Substance: CROTALIDAE POLYVALENT IMMUNE FAB (OVINE)
     Indication: SNAKE BITE
     Dosage: 2 VIALS. MAINTENANCE DOSE.
     Route: 065
     Dates: start: 20190416
  2. CROFAB [Suspect]
     Active Substance: CROTALIDAE POLYVALENT IMMUNE FAB (OVINE)
     Indication: SNAKE BITE
     Dosage: 12 TOTAL DOSES OF CROFAB, LAST DOSE AT 0900 ON 17-APR-2019.
     Route: 065
     Dates: start: 20190417, end: 20190417
  3. CROFAB [Suspect]
     Active Substance: CROTALIDAE POLYVALENT IMMUNE FAB (OVINE)
     Indication: SNAKE BITE
     Dosage: 6 VIALS. INITIAL CONTROL DOSE.
     Route: 065
     Dates: start: 20190415

REACTIONS (6)
  - Pain [Unknown]
  - Puncture site pain [Unknown]
  - Skin irritation [Unknown]
  - Skin oedema [Unknown]
  - Peripheral swelling [Recovering/Resolving]
  - Off label use [Unknown]

NARRATIVE: CASE EVENT DATE: 20190416
